FAERS Safety Report 5058356-5 (Version None)
Quarter: 2006Q2

REPORT INFORMATION
  Report Type: 
  Country: None (occurrence: None)
  Receive Date: 20060627
  Receipt Date: 20051028
  Transmission Date: 20061013
  Serious: Yes (Death)
  Sender: FDA-Public Use
  Company Number: 423135

PATIENT
  Age: 50 Year
  Sex: Female
  Weight: 55.8 kg

DRUGS (3)
  1. XELODA [Suspect]
     Indication: PANCREATIC CARCINOMA
     Dosage: ORAL
     Route: 048
     Dates: start: 20050729
  2. TARCEVA [Concomitant]
  3. GEMZAR [Concomitant]

REACTIONS (1)
  - PANCREATIC CARCINOMA METASTATIC [None]
